FAERS Safety Report 14530100 (Version 1)
Quarter: 2018Q1

REPORT INFORMATION
  Report Type: Other
  Country: IT (occurrence: IT)
  Receive Date: 20180214
  Receipt Date: 20180214
  Transmission Date: 20180509
  Serious: Yes (Hospitalization)
  Sender: FDA-Public Use
  Company Number: IT-GLENMARK PHARMACEUTICALS-2017GMK031972

PATIENT

DRUGS (2)
  1. BRINTELLIX [Suspect]
     Active Substance: VORTIOXETINE HYDROBROMIDE
     Indication: DRUG ABUSE
     Dosage: 7 ML, IN TOTAL
     Route: 048
     Dates: start: 20160920, end: 20160920
  2. CITALOPRAM HYDROBROMIDE. [Suspect]
     Active Substance: CITALOPRAM HYDROBROMIDE
     Indication: PRODUCT USED FOR UNKNOWN INDICATION
     Dosage: 15 ML, IN TOTAL
     Route: 048
     Dates: start: 20160920, end: 20160920

REACTIONS (5)
  - Retching [Unknown]
  - Electrocardiogram QT prolonged [Unknown]
  - Drug abuse [Unknown]
  - Sopor [Unknown]
  - Tachycardia [Unknown]

NARRATIVE: CASE EVENT DATE: 20160920
